FAERS Safety Report 5505698-2 (Version None)
Quarter: 2007Q4

REPORT INFORMATION
  Report Type: 
  Country: None (occurrence: None)
  Receive Date: 20071102
  Receipt Date: 20070929
  Transmission Date: 20080405
  Serious: Yes (Life-Threatening, Other)
  Sender: FDA-Public Use
  Company Number: DE-PFIZER INC-2007083096

PATIENT
  Sex: Female
  Weight: 60 kg

DRUGS (1)
  1. HYDROXYZINE HYDROCHLORIDE [Suspect]
     Dosage: DAILY DOSE:125MG-TEXT:125 MG SINGLE DOSE-FREQ:ONCE
     Route: 048
     Dates: start: 20070929, end: 20070929

REACTIONS (4)
  - BRADYCARDIA [None]
  - INTENTIONAL OVERDOSE [None]
  - SOMNOLENCE [None]
  - SUICIDAL IDEATION [None]
